FAERS Safety Report 24812391 (Version 1)
Quarter: 2025Q1

REPORT INFORMATION
  Report Type: Spontaneous
  Country: US (occurrence: US)
  Receive Date: 20250106
  Receipt Date: 20250106
  Transmission Date: 20250409
  Serious: Yes (Death)
  Sender: JOHNSON AND JOHNSON
  Company Number: US-JNJFOC-20241237093

PATIENT
  Age: 68 Year
  Sex: Male

DRUGS (3)
  1. TALQUETAMAB [Suspect]
     Active Substance: TALQUETAMAB
     Indication: Plasma cell myeloma
  2. TOCILIZUMAB [Concomitant]
     Active Substance: TOCILIZUMAB
  3. RASBURICASE [Concomitant]
     Active Substance: RASBURICASE

REACTIONS (1)
  - Sepsis [Fatal]
